FAERS Safety Report 6396846-3 (Version None)
Quarter: 2009Q4

REPORT INFORMATION
  Report Type: 
  Country: None (occurrence: None)
  Receive Date: 20091012
  Receipt Date: 20090622
  Transmission Date: 20100525
  Serious: No
  Sender: FDA-Public Use
  Company Number: US-ASTRAZENECA-2009UW16771

PATIENT
  Age: 25765 Day
  Sex: Female

DRUGS (4)
  1. SYMBICORT [Suspect]
     Indication: TUBERCULOSIS
     Dosage: 2 PUFFS
     Route: 055
  2. ADVAIR DISKUS 100/50 [Suspect]
     Indication: TUBERCULOSIS
  3. SYNTHROID [Concomitant]
     Indication: HYPOTHYROIDISM
  4. ACTONEL [Concomitant]

REACTIONS (3)
  - DYSPNOEA [None]
  - OROPHARYNGEAL BLISTERING [None]
  - WEIGHT INCREASED [None]
